FAERS Safety Report 4615744-6 (Version None)
Quarter: 2005Q1

REPORT INFORMATION
  Report Type: 
  Country: None (occurrence: None)
  Receive Date: 20050317
  Receipt Date: 20050301
  Transmission Date: 20050727
  Serious: Yes (Hospitalization)
  Sender: FDA-Public Use
  Company Number: 2005000477

PATIENT
  Age: 61 Year
  Sex: Male
  Weight: 80.7403 kg

DRUGS (3)
  1. TARCEVA [Suspect]
     Indication: RENAL CELL CARCINOMA STAGE UNSPECIFIED
     Dosage: 150 MG (QD), ORAL
     Route: 048
     Dates: start: 20050124, end: 20050225
  2. BEVACIZUMAB (INJECTION FOR INFUSION) [Suspect]
     Indication: RENAL CELL CARCINOMA STAGE UNSPECIFIED
     Dosage: 820 MG (Q 2 WEEKS), INTRAVENOUS
     Route: 042
     Dates: start: 20050201, end: 20050215
  3. PROTONIX [Concomitant]

REACTIONS (2)
  - INTESTINAL PERFORATION [None]
  - RASH [None]
